FAERS Safety Report 5952669-8 (Version None)
Quarter: 2008Q4

REPORT INFORMATION
  Report Type: 
  Country: None (occurrence: None)
  Receive Date: 20081031
  Receipt Date: 20080605
  Transmission Date: 20090506
  Serious: No
  Sender: FDA-Public Use
  Company Number: 2008-US-000310

PATIENT
  Age: 9 Year
  Sex: Female
  Weight: 22.9 kg

DRUGS (1)
  1. INCRELEX [Suspect]
     Indication: INSULIN-LIKE GROWTH FACTOR DECREASED
     Dosage: 28 UG/KG, BID, SUBCUTANEOUS
     Route: 058
     Dates: start: 20050701

REACTIONS (1)
  - SPIDER NAEVUS [None]
